FAERS Safety Report 22348998 (Version 1)
Quarter: 2023Q2

REPORT INFORMATION
  Report Type: Report from Study
  Country: US (occurrence: US)
  Receive Date: 20230522
  Receipt Date: 20230522
  Transmission Date: 20230721
  Serious: Yes (Other)
  Sender: FDA-Public Use
  Company Number: US-ABBVIE-4772192

PATIENT
  Age: 62 Year
  Sex: Male

DRUGS (1)
  1. HUMIRA [Suspect]
     Active Substance: ADALIMUMAB
     Indication: Rheumatoid arthritis
     Dosage: FORM STRENGTH: 40 MG
     Route: 058
     Dates: start: 20221118

REACTIONS (5)
  - Chemotherapy [Unknown]
  - Asthenia [Unknown]
  - Illness [Recovering/Resolving]
  - Gait disturbance [Unknown]
  - Dysuria [Unknown]

NARRATIVE: CASE EVENT DATE: 20230501
